FAERS Safety Report 6773126-5 (Version None)
Quarter: 2010Q2

REPORT INFORMATION
  Report Type: 
  Country: None (occurrence: None)
  Receive Date: 20100616
  Receipt Date: 20100603
  Transmission Date: 20101027
  Serious: Yes (Other)
  Sender: FDA-Public Use
  Company Number: US-ELI_LILLY_AND_COMPANY-US201006001798

PATIENT
  Sex: Female

DRUGS (13)
  1. FORTEO [Suspect]
     Indication: OSTEOPOROSIS
     Dosage: 20 UG, DAILY (1/D)
     Dates: start: 20090301
  2. CARDIZEM [Concomitant]
     Dosage: 180 MG, DAILY (1/D)
  3. ZYRTEC [Concomitant]
     Dosage: 10 MG, DAILY (1/D)
  4. MUCINEX [Concomitant]
     Dosage: 1200 MG, DAILY (1/D)
  5. CALCIUM CARBONATE [Concomitant]
     Dosage: 2200 MG, DAILY (1/D)
  6. REQUIP [Concomitant]
     Dosage: 2400 MG, DAILY (1/D)
  7. SINEMET [Concomitant]
     Dosage: 200 MG, DAILY (1/D)
  8. AMANTADINE HCL [Concomitant]
     Dosage: 100 MG, 2/D
  9. STALEVO 100 [Concomitant]
     Dosage: 600 MG, DAILY (1/D)
  10. NEURONTIN [Concomitant]
     Dosage: 800 MG, 4/D
  11. MAVID [Concomitant]
     Dosage: 15 MG, DAILY (1/D)
  12. ENAPRIL                            /00574901/ [Concomitant]
     Dosage: 2 D/F, DAILY (1/D)
  13. VITAMIN D3 [Concomitant]
     Dosage: 100 MG, 4/D

REACTIONS (1)
  - STAPHYLOCOCCAL INFECTION [None]
